FAERS Safety Report 9519754 (Version 1)
Quarter: 2013Q1

REPORT INFORMATION
  Report Type: Spontaneous
  Country: US (occurrence: None)
  Receive Date: 20130305
  Receipt Date: 20130305
  Transmission Date: 20140127
  Serious: Yes (Other)
  Sender: FDA-Public Use
  Company Number: 163-21880-12080753

PATIENT
  Age: 60 Year
  Sex: Male
  Weight: 122.47 kg

DRUGS (10)
  1. REVLIMID [Suspect]
     Indication: PLASMA CELL MYELOMA
     Dosage: 21 IN 21 D
     Route: 048
     Dates: start: 20090817
  2. LEVAQUIN (LEVOFLOXACIN) [Concomitant]
  3. ASPIRIN (ACETYLSALICYLIC ACID) [Concomitant]
  4. CALCIUM WITH VITAMIN D [Concomitant]
  5. DEXAMETHASONE [Concomitant]
  6. MULTIVITAMINS [Concomitant]
  7. OXYCODONE/APAP [Concomitant]
  8. PRAVASTATIN [Concomitant]
  9. PREVACID (LANSOPRAZOLE) [Concomitant]
  10. SYNTHROID (LEVOTHYROXINE SODIUM) [Concomitant]

REACTIONS (1)
  - Sinusitis [None]
